FAERS Safety Report 4444272-6 (Version None)
Quarter: 2004Q3

REPORT INFORMATION
  Report Type: 
  Country: None (occurrence: None)
  Receive Date: 20040902
  Receipt Date: 20040817
  Transmission Date: 20050211
  Serious: Yes (Hospitalization, Other)
  Sender: FDA-Public Use
  Company Number: US_0408104894

PATIENT
  Age: 40 Year
  Sex: Male
  Weight: 67 kg

DRUGS (2)
  1. HUMALOG [Suspect]
     Dates: start: 20020101
  2. LANTUS [Concomitant]

REACTIONS (3)
  - INFECTION [None]
  - OSTEOMYELITIS [None]
  - TOE AMPUTATION [None]
